FAERS Safety Report 9064441 (Version 1)
Quarter: 2013Q1

REPORT INFORMATION
  Report Type: Spontaneous
  Country: US (occurrence: US)
  Receive Date: 20130213
  Receipt Date: 20130213
  Transmission Date: 20140127
  Serious: Yes (Hospitalization, Other)
  Sender: FDA-Public Use
  Company Number: US-ELI_LILLY_AND_COMPANY-US201301003724

PATIENT
  Age: 67 None
  Sex: Female

DRUGS (12)
  1. FORTEO [Suspect]
     Indication: OSTEOPOROSIS
     Dosage: UNK, QD
     Dates: start: 20121107
  2. EFFEXOR [Concomitant]
  3. LYRICA [Concomitant]
  4. MIRAPEX [Concomitant]
  5. XYZAL [Concomitant]
  6. SINGULAIR [Concomitant]
  7. DEXALIN [Concomitant]
  8. XANAX [Concomitant]
  9. HYDROMORPHONE [Concomitant]
  10. VERAMYST [Concomitant]
  11. ADVAIR [Concomitant]
  12. ALBUTEROL [Concomitant]

REACTIONS (9)
  - Fall [Unknown]
  - Wrist fracture [Unknown]
  - Head injury [Unknown]
  - Aphasia [Recovered/Resolved]
  - Nasopharyngitis [Unknown]
  - Off label use [Unknown]
  - Memory impairment [Unknown]
  - Eye disorder [Unknown]
  - Back pain [Not Recovered/Not Resolved]
